FAERS Safety Report 9345990 (Version 3)
Quarter: 2013Q2

REPORT INFORMATION
  Report Type: Report from Study
  Country: CA (occurrence: CA)
  Receive Date: 20130613
  Receipt Date: 20130626
  Transmission Date: 20140414
  Serious: Yes (Other)
  Sender: FDA-Public Use
  Company Number: CA-ROCHE-1184110

PATIENT
  Age: 65 Year
  Sex: Female
  Weight: 89 kg

DRUGS (8)
  1. AVASTIN [Suspect]
     Indication: OVARIAN CANCER
     Dosage: ON 16/MAY/2013, SHE WAS NOT FEELING WELL DUE TO WHICH THE DOSE OF BEVACIZUMAB WAS DELAYED.
     Route: 042
     Dates: start: 20121010
  2. AVASTIN [Suspect]
     Route: 042
     Dates: start: 20121121
  3. AVASTIN [Suspect]
     Route: 042
     Dates: start: 20121212, end: 20130424
  4. SOLU-MEDROL [Concomitant]
     Indication: PREMEDICATION
     Route: 042
     Dates: start: 20121010, end: 20121010
  5. TYLENOL [Concomitant]
     Indication: PREMEDICATION
     Route: 048
     Dates: start: 20121010, end: 20121010
  6. BENADRYL [Concomitant]
     Indication: PREMEDICATION
     Route: 048
     Dates: start: 20121010, end: 20121010
  7. TYLENOL EXTRA STRENGTH [Concomitant]
  8. DIPHENHYDRAMINE HCL [Concomitant]
     Route: 048
     Dates: start: 20121010, end: 20121010

REACTIONS (10)
  - Carbohydrate antigen 125 increased [Unknown]
  - Ascites [Unknown]
  - Pelvic fluid collection [Unknown]
  - Functional gastrointestinal disorder [Unknown]
  - Disease progression [Unknown]
  - Onychalgia [Not Recovered/Not Resolved]
  - Nail disorder [Not Recovered/Not Resolved]
  - Nasopharyngitis [Not Recovered/Not Resolved]
  - Inappropriate schedule of drug administration [Unknown]
  - Influenza [Unknown]
